FAERS Safety Report 25233985 (Version 1)
Quarter: 2025Q2

REPORT INFORMATION
  Report Type: Spontaneous
  Country: IN (occurrence: IN)
  Receive Date: 20250424
  Receipt Date: 20250424
  Transmission Date: 20250716
  Serious: Yes (Other)
  Sender: HETERO
  Company Number: IN-AMAROX PHARMA-HET2025IN02058

PATIENT
  Sex: Female

DRUGS (1)
  1. LINEZOLID [Suspect]
     Active Substance: LINEZOLID
     Indication: Pulmonary tuberculosis
     Route: 065

REACTIONS (3)
  - Axonal neuropathy [Recovering/Resolving]
  - Peripheral sensory neuropathy [Recovering/Resolving]
  - Off label use [Unknown]
